FAERS Safety Report 20583731 (Version 1)
Quarter: 2022Q1

REPORT INFORMATION
  Report Type: Spontaneous
  Country: US (occurrence: None)
  Receive Date: 20220311
  Receipt Date: 20220311
  Transmission Date: 20220424
  Serious: No
  Sender: FDA-Public Use
  Company Number: None

PATIENT
  Age: 67 Year
  Sex: Female

DRUGS (1)
  1. COSENTYX [Suspect]
     Active Substance: SECUKINUMAB
     Route: 058
     Dates: start: 201908

REACTIONS (3)
  - Arrhythmia [None]
  - Pulmonary embolism [None]
  - Cardiac arrest [None]

NARRATIVE: CASE EVENT DATE: 20211127
